FAERS Safety Report 9851815 (Version 5)
Quarter: 2014Q2

REPORT INFORMATION
  Report Type: Spontaneous
  Country: US (occurrence: None)
  Receive Date: 20140127
  Receipt Date: 20140502
  Transmission Date: 20141212
  Serious: Yes (Hospitalization, Other)
  Sender: FDA-Public Use
  Company Number: US-000901

PATIENT
  Age: 69 Year
  Sex: Female

DRUGS (4)
  1. GATTEX [Suspect]
     Indication: SHORT-BOWEL SYNDROME
     Route: 058
     Dates: start: 20131228, end: 20140401
  2. ZOFRAN /00955301/ [Concomitant]
  3. SOLUTIONS FOR PARENTERAL NUTRITION [Concomitant]
  4. AMBIEN [Concomitant]

REACTIONS (14)
  - Abdominal distension [None]
  - Weight increased [None]
  - Pyrexia [None]
  - Nausea [None]
  - Device related infection [None]
  - Intestinal obstruction [None]
  - Nasal congestion [None]
  - No therapeutic response [None]
  - Lymphadenopathy [None]
  - Nasal cavity mass [None]
  - Nasal cavity cancer [None]
  - Throat cancer [None]
  - Ear neoplasm malignant [None]
  - Rhinorrhoea [None]
